FAERS Safety Report 9808000 (Version 1)
Quarter: 2014Q1

REPORT INFORMATION
  Report Type: Spontaneous
  Country: US (occurrence: US)
  Receive Date: 20140110
  Receipt Date: 20140110
  Transmission Date: 20141002
  Serious: No
  Sender: FDA-Public Use
  Company Number: US-009507513-1401USA003249

PATIENT
  Sex: Male

DRUGS (1)
  1. AFRIN NO DRIP SEVERE CONGESTION [Suspect]
     Indication: RESPIRATORY TRACT CONGESTION
     Dosage: UNK, TID
     Route: 045
     Dates: start: 20131216, end: 20131217

REACTIONS (4)
  - Palpitations [Unknown]
  - Extrasystoles [Unknown]
  - Blood pressure increased [Unknown]
  - Heart rate increased [Unknown]
